FAERS Safety Report 10818510 (Version 3)
Quarter: 2015Q2

REPORT INFORMATION
  Report Type: Spontaneous
  Country: BR (occurrence: BR)
  Receive Date: 20150218
  Receipt Date: 20150414
  Transmission Date: 20150821
  Serious: Yes (Hospitalization, Other)
  Sender: FDA-Public Use
  Company Number: BR-PFIZER INC-2015056815

PATIENT
  Age: 44 Year
  Sex: Female

DRUGS (5)
  1. SIMETHICONE [Concomitant]
     Active Substance: DIMETHICONE\SILICON DIOXIDE\SIMETHICONE
     Indication: FLATULENCE
  2. OMEPRAZOLE. [Concomitant]
     Active Substance: OMEPRAZOLE
     Indication: GASTRIC DISORDER
  3. PIROXICAM. [Concomitant]
     Active Substance: PIROXICAM
  4. FIBRASE [Suspect]
     Active Substance: CHLORAMPHENICOL
     Indication: PROMOTION OF WOUND HEALING
     Dosage: ONCE DAILY
     Dates: start: 1983
  5. FIBRASE [Suspect]
     Active Substance: CHLORAMPHENICOL
     Dosage: 2 OR 3 TIMES
     Dates: start: 2005

REACTIONS (3)
  - Diabetes mellitus [Unknown]
  - Mental disorder [Unknown]
  - Gastrointestinal disorder [Unknown]

NARRATIVE: CASE EVENT DATE: 2012
